FAERS Safety Report 22640065 (Version 5)
Quarter: 2024Q2

REPORT INFORMATION
  Report Type: Report from Study
  Country: US (occurrence: US)
  Receive Date: 20230626
  Receipt Date: 20240527
  Transmission Date: 20240715
  Serious: No
  Sender: FDA-Public Use
  Company Number: US-002147023-NVSC2023US140800

PATIENT
  Age: 47 Year
  Sex: Female

DRUGS (1)
  1. KESIMPTA [Suspect]
     Active Substance: OFATUMUMAB
     Indication: Multiple sclerosis
     Dosage: 0.4 MG, QMO
     Route: 058
     Dates: start: 20230619

REACTIONS (4)
  - Feeling abnormal [Unknown]
  - Urinary tract infection [Unknown]
  - Crying [Unknown]
  - Back pain [Unknown]

NARRATIVE: CASE EVENT DATE: 20230619
